FAERS Safety Report 9634695 (Version 1)
Quarter: 2013Q4

REPORT INFORMATION
  Report Type: Spontaneous
  Country: FR (occurrence: FR)
  Receive Date: 20131021
  Receipt Date: 20131021
  Transmission Date: 20140711
  Serious: Yes (Hospitalization)
  Sender: FDA-Public Use
  Company Number: FR-PFIZER INC-2013296988

PATIENT
  Age: 43 Year
  Sex: Male

DRUGS (4)
  1. LYRICA [Suspect]
     Dosage: UNK
     Route: 048
     Dates: start: 20130325
  2. LAROXYL [Suspect]
     Dosage: 40 MG/ML, UNK
     Route: 048
     Dates: start: 20130513, end: 20130515
  3. DAFALGAN [Suspect]
     Dosage: UNK
     Route: 048
     Dates: start: 20130320, end: 20130515
  4. INEXIUM [Suspect]
     Dosage: UNK
     Route: 048
     Dates: start: 20130402, end: 20130515

REACTIONS (2)
  - Hepatocellular injury [Recovering/Resolving]
  - Cholestasis [Recovering/Resolving]
